FAERS Safety Report 8249901-7 (Version None)
Quarter: 2012Q2

REPORT INFORMATION
  Report Type: 
  Country: None (occurrence: None)
  Receive Date: 20120402
  Receipt Date: 20120323
  Transmission Date: 20120825
  Serious: Yes (Other)
  Sender: FDA-Public Use
  Company Number: PHHY2011IE89511

PATIENT
  Sex: Female
  Weight: 73 kg

DRUGS (9)
  1. IBANDRONATE SODIUM [Concomitant]
     Indication: OSTEOPOROSIS
     Dosage: 150 MG, PER MONTH
     Route: 048
     Dates: start: 20070516, end: 20110915
  2. ATORVASTATIN [Concomitant]
     Indication: BLOOD CHOLESTEROL INCREASED
     Dosage: 40 MG,
     Route: 048
     Dates: start: 20100210, end: 20111114
  3. NEBIVOLOL [Concomitant]
     Indication: HYPERTENSION
     Dosage: 5 MG
     Route: 048
     Dates: start: 20070131, end: 20111114
  4. RASILEZ [Suspect]
     Indication: HYPERTENSION
     Dosage: 150 MG
     Route: 048
     Dates: start: 20110411, end: 20110515
  5. LANSOPRAZOLE [Concomitant]
     Indication: GASTRITIS PROPHYLAXIS
     Dosage: 30 MG
     Route: 048
     Dates: start: 20110126, end: 20111114
  6. RASILEZ [Suspect]
     Dosage: 300 MG
     Route: 048
     Dates: start: 20110518, end: 20110920
  7. CLOPIDOGREL [Concomitant]
     Indication: TRANSIENT ISCHAEMIC ATTACK
     Dosage: 75 MG
     Route: 048
     Dates: start: 20110611, end: 20111114
  8. TERIPARATIDE [Concomitant]
  9. AMLODIPINE [Concomitant]
     Indication: HYPERTENSION
     Dosage: 10 MG
     Route: 048
     Dates: start: 20110519, end: 20111114

REACTIONS (1)
  - HYPONATRAEMIA [None]
